FAERS Safety Report 10020016 (Version 1)
Quarter: 2014Q1

REPORT INFORMATION
  Report Type: Spontaneous
  Country: US (occurrence: US)
  Receive Date: 20140318
  Receipt Date: 20140318
  Transmission Date: 20141002
  Serious: No
  Sender: FDA-Public Use
  Company Number: US-TEVA-469315USA

PATIENT
  Age: 82 Year
  Sex: Female
  Weight: 49.94 kg

DRUGS (8)
  1. AZILECT [Suspect]
     Indication: PARKINSON^S DISEASE
     Dates: start: 20140302
  2. CARBIDOPA W/LEVODOPA [Concomitant]
     Indication: PARKINSON^S DISEASE
     Dosage: 24/100MGS TID
     Route: 048
  3. GABAPENTIN [Concomitant]
     Indication: PARKINSON^S DISEASE
     Dosage: 300 MILLIGRAM DAILY;
     Route: 048
  4. LEVOTHYROXINE [Concomitant]
     Indication: HYPOTHYROIDISM
  5. MELOXICAM [Concomitant]
     Indication: ARTHRITIS
     Dosage: 15 MILLIGRAM DAILY;
     Route: 048
  6. ATORVASTATIN [Concomitant]
     Indication: BLOOD CHOLESTEROL ABNORMAL
     Dosage: 4 MILLIGRAM DAILY;
     Route: 048
  7. ONE A DAY VITAMINS [Concomitant]
     Indication: SUPPLEMENTATION THERAPY
     Route: 048
  8. CALCIUM WITH VITAMIN D [Concomitant]
     Indication: SUPPLEMENTATION THERAPY
     Route: 048

REACTIONS (9)
  - Dizziness [Recovered/Resolved]
  - Dizziness [Recovered/Resolved]
  - Abdominal pain [Recovered/Resolved]
  - Feeling abnormal [Recovered/Resolved]
  - Feeling abnormal [Recovered/Resolved]
  - Asthenia [Recovered/Resolved]
  - Diarrhoea [Recovered/Resolved]
  - Nausea [Recovered/Resolved]
  - Blood pressure increased [Not Recovered/Not Resolved]
